FAERS Safety Report 15739026 (Version 1)
Quarter: 2018Q4

REPORT INFORMATION
  Report Type: Other
  Country: BE (occurrence: BE)
  Receive Date: 20181219
  Receipt Date: 20181219
  Transmission Date: 20190205
  Serious: Yes (Hospitalization, Other)
  Sender: FDA-Public Use
  Company Number: BE-APOTEX-2018AP026738

PATIENT
  Age: 87 Year
  Sex: Female
  Weight: 46.8 kg

DRUGS (11)
  1. BISOPROLOL EG [Concomitant]
     Active Substance: BISOPROLOL
     Indication: HYPERTENSION
     Dosage: 5 MG, QD
     Route: 048
  2. DAFALGAN FORTE [Concomitant]
     Indication: PRODUCT USED FOR UNKNOWN INDICATION
     Dosage: 1 G, QD
     Route: 048
  3. HALDOL [Concomitant]
     Active Substance: HALOPERIDOL
     Indication: DELIRIUM
     Dosage: 10 GTT, QD
     Route: 048
  4. MEDROL [Concomitant]
     Active Substance: METHYLPREDNISOLONE
     Indication: PSORIATIC ARTHROPATHY
     Dosage: 2 MG, UNK
     Route: 048
  5. ENBREL [Concomitant]
     Active Substance: ETANERCEPT
     Indication: PRODUCT USED FOR UNKNOWN INDICATION
     Dosage: 50 MG, QD
     Route: 058
  6. METHOTREXATE (METHOTREXATE SODIUM) [Interacting]
     Active Substance: METHOTREXATE SODIUM
     Indication: PRODUCT USED FOR UNKNOWN INDICATION
     Dosage: 5 MG, UNK (ONCE A WEEK)
     Route: 048
  7. D-CURE [Concomitant]
     Active Substance: CHOLECALCIFEROL
     Indication: VITAMIN D DEFICIENCY
     Dosage: 1 IU, Q.M.T. (ONCE A MONTH)
     Route: 048
  8. OMEPRAZOLE. [Suspect]
     Active Substance: OMEPRAZOLE
     Indication: PROPHYLAXIS AGAINST GASTROINTESTINAL ULCER
     Dosage: 20 MG, QD (EVERY DAY)
     Route: 048
  9. FOLIC ACID. [Concomitant]
     Active Substance: FOLIC ACID
     Indication: PROPHYLAXIS
     Dosage: 2 MG, UNK
     Route: 048
  10. IRBESARTAN TEVA [Concomitant]
     Active Substance: IRBESARTAN
     Indication: HYPERTENSION
     Dosage: 300 MG, UNK
     Route: 048
  11. STEOVIT FORTE [Concomitant]
     Indication: OSTEOPOROSIS PROPHYLAXIS
     Dosage: 1000 MG, QD
     Route: 048

REACTIONS (8)
  - Stomatitis [Recovering/Resolving]
  - Pancytopenia [Recovering/Resolving]
  - Overdose [Recovering/Resolving]
  - Mucosal inflammation [Recovering/Resolving]
  - Decreased appetite [Recovering/Resolving]
  - Incorrect dose administered [Recovering/Resolving]
  - Pyrexia [Recovering/Resolving]
  - Drug interaction [Recovering/Resolving]

NARRATIVE: CASE EVENT DATE: 20180627
